FAERS Safety Report 26193001 (Version 1)
Quarter: 2025Q4

REPORT INFORMATION
  Report Type: Spontaneous
  Country: US (occurrence: US)
  Receive Date: 20251223
  Receipt Date: 20251223
  Transmission Date: 20260117
  Serious: No
  Sender: GILEAD
  Company Number: US-GILEAD-2025-0742041

PATIENT
  Sex: Male

DRUGS (3)
  1. YEZTUGO [Suspect]
     Active Substance: LENACAPAVIR SODIUM
     Indication: Product used for unknown indication
     Dosage: UNK INJECTION ON RIGHT SIDE AND LEFT SIDE
     Route: 065
     Dates: start: 20251218, end: 20251218
  2. YEZTUGO [Suspect]
     Active Substance: LENACAPAVIR SODIUM
     Indication: Product used for unknown indication
     Dosage: ORAL LOADING DOSE
     Route: 048
     Dates: start: 20251218
  3. YEZTUGO [Suspect]
     Active Substance: LENACAPAVIR SODIUM
     Dosage: 2ND ORAL LOADING DOSE
     Route: 048
     Dates: start: 20251219

REACTIONS (1)
  - Injection site discharge [Unknown]

NARRATIVE: CASE EVENT DATE: 20251218
